FAERS Safety Report 13194018 (Version 3)
Quarter: 2017Q1

REPORT INFORMATION
  Report Type: Spontaneous
  Country: IT (occurrence: IT)
  Receive Date: 20170207
  Receipt Date: 20170301
  Transmission Date: 20170428
  Serious: Yes (Death, Other)
  Sender: FDA-Public Use
  Company Number: IT-AMGEN-ITASP2017019167

PATIENT
  Age: 61 Year
  Sex: Male

DRUGS (7)
  1. MEDEOROS [Concomitant]
     Dosage: 65 UNK, QWK
  2. NAPRILENE [Concomitant]
     Active Substance: ENALAPRIL MALEATE
     Dosage: 10 MG, QD
  3. PROLIA [Suspect]
     Active Substance: DENOSUMAB
     Indication: OSTEOPOROSIS
     Dosage: 60 MG, UNK
     Route: 058
     Dates: start: 20161123, end: 20161123
  4. ENALAPRIL [Concomitant]
     Active Substance: ENALAPRIL
     Dosage: UNK
  5. DIBASE [Concomitant]
     Active Substance: CHOLECALCIFEROL
     Dosage: 25000 UNK, QMO
  6. COLECALCIFEROL [Concomitant]
     Active Substance: CHOLECALCIFEROL
     Dosage: UNK
  7. PLAQUENIL [Concomitant]
     Active Substance: HYDROXYCHLOROQUINE SULFATE
     Dosage: 200 MG, UNK

REACTIONS (3)
  - Respiratory failure [Not Recovered/Not Resolved]
  - Sudden cardiac death [Fatal]
  - Bronchitis [Unknown]

NARRATIVE: CASE EVENT DATE: 20161127
